FAERS Safety Report 17367624 (Version 5)
Quarter: 2025Q3

REPORT INFORMATION
  Report Type: Spontaneous
  Country: EU (occurrence: EU)
  Receive Date: 20200204
  Receipt Date: 20250908
  Transmission Date: 20251020
  Serious: Yes (Death, Other)
  Sender: MYLAN
  Company Number: EU-002147023-NVSC2019GR052792

PATIENT
  Age: 4 Month
  Sex: Male

DRUGS (64)
  1. ETOPOSIDE [Suspect]
     Active Substance: ETOPOSIDE
     Indication: Acute lymphocytic leukaemia
  2. ETOPOSIDE [Suspect]
     Active Substance: ETOPOSIDE
     Indication: B precursor type acute leukaemia
     Route: 065
  3. ETOPOSIDE [Suspect]
     Active Substance: ETOPOSIDE
     Route: 065
  4. ETOPOSIDE [Suspect]
     Active Substance: ETOPOSIDE
  5. METHOTREXATE [Suspect]
     Active Substance: METHOTREXATE
     Indication: Acute lymphocytic leukaemia
  6. METHOTREXATE [Suspect]
     Active Substance: METHOTREXATE
     Indication: B precursor type acute leukaemia
     Route: 065
  7. METHOTREXATE [Suspect]
     Active Substance: METHOTREXATE
     Route: 065
  8. METHOTREXATE [Suspect]
     Active Substance: METHOTREXATE
  9. CYCLOPHOSPHAMIDE [Suspect]
     Active Substance: CYCLOPHOSPHAMIDE
     Indication: Acute lymphocytic leukaemia
  10. CYCLOPHOSPHAMIDE [Suspect]
     Active Substance: CYCLOPHOSPHAMIDE
     Indication: B precursor type acute leukaemia
     Route: 065
  11. CYCLOPHOSPHAMIDE [Suspect]
     Active Substance: CYCLOPHOSPHAMIDE
     Route: 065
  12. CYCLOPHOSPHAMIDE [Suspect]
     Active Substance: CYCLOPHOSPHAMIDE
  13. CLOFARABINE [Suspect]
     Active Substance: CLOFARABINE
     Indication: Acute lymphocytic leukaemia
  14. CLOFARABINE [Suspect]
     Active Substance: CLOFARABINE
     Indication: B precursor type acute leukaemia
     Route: 065
  15. CLOFARABINE [Suspect]
     Active Substance: CLOFARABINE
     Route: 065
  16. CLOFARABINE [Suspect]
     Active Substance: CLOFARABINE
  17. BLINATUMOMAB [Suspect]
     Active Substance: BLINATUMOMAB
     Indication: Acute lymphocytic leukaemia
     Route: 065
  18. BLINATUMOMAB [Suspect]
     Active Substance: BLINATUMOMAB
     Indication: B precursor type acute leukaemia
  19. BLINATUMOMAB [Suspect]
     Active Substance: BLINATUMOMAB
  20. BLINATUMOMAB [Suspect]
     Active Substance: BLINATUMOMAB
     Route: 065
  21. BLINATUMOMAB [Suspect]
     Active Substance: BLINATUMOMAB
     Route: 065
  22. BLINATUMOMAB [Suspect]
     Active Substance: BLINATUMOMAB
  23. BLINATUMOMAB [Suspect]
     Active Substance: BLINATUMOMAB
  24. BLINATUMOMAB [Suspect]
     Active Substance: BLINATUMOMAB
     Route: 065
  25. PURINETHOL [Suspect]
     Active Substance: MERCAPTOPURINE
     Indication: Acute lymphocytic leukaemia
  26. PURINETHOL [Suspect]
     Active Substance: MERCAPTOPURINE
     Indication: B precursor type acute leukaemia
     Route: 065
  27. PURINETHOL [Suspect]
     Active Substance: MERCAPTOPURINE
     Route: 065
  28. PURINETHOL [Suspect]
     Active Substance: MERCAPTOPURINE
  29. VINCRISTINE SULFATE [Suspect]
     Active Substance: VINCRISTINE SULFATE
     Indication: Acute lymphocytic leukaemia
  30. VINCRISTINE SULFATE [Suspect]
     Active Substance: VINCRISTINE SULFATE
     Indication: B precursor type acute leukaemia
  31. VINCRISTINE SULFATE [Suspect]
     Active Substance: VINCRISTINE SULFATE
     Route: 065
  32. VINCRISTINE SULFATE [Suspect]
     Active Substance: VINCRISTINE SULFATE
     Route: 065
  33. VINCRISTINE SULFATE [Suspect]
     Active Substance: VINCRISTINE SULFATE
  34. VINCRISTINE SULFATE [Suspect]
     Active Substance: VINCRISTINE SULFATE
  35. VINCRISTINE SULFATE [Suspect]
     Active Substance: VINCRISTINE SULFATE
     Route: 065
  36. VINCRISTINE SULFATE [Suspect]
     Active Substance: VINCRISTINE SULFATE
     Route: 065
  37. FLUDARABINE [Suspect]
     Active Substance: FLUDARABINE PHOSPHATE
     Indication: Acute lymphocytic leukaemia
  38. FLUDARABINE [Suspect]
     Active Substance: FLUDARABINE PHOSPHATE
     Indication: B precursor type acute leukaemia
     Route: 065
  39. FLUDARABINE [Suspect]
     Active Substance: FLUDARABINE PHOSPHATE
     Route: 065
  40. FLUDARABINE [Suspect]
     Active Substance: FLUDARABINE PHOSPHATE
  41. CYTARABINE [Suspect]
     Active Substance: CYTARABINE
     Indication: Acute lymphocytic leukaemia
  42. CYTARABINE [Suspect]
     Active Substance: CYTARABINE
     Indication: B precursor type acute leukaemia
     Route: 065
  43. CYTARABINE [Suspect]
     Active Substance: CYTARABINE
     Route: 065
  44. CYTARABINE [Suspect]
     Active Substance: CYTARABINE
  45. IDARUBICIN HYDROCHLORIDE [Suspect]
     Active Substance: IDARUBICIN HYDROCHLORIDE
     Indication: Acute lymphocytic leukaemia
  46. IDARUBICIN HYDROCHLORIDE [Suspect]
     Active Substance: IDARUBICIN HYDROCHLORIDE
     Indication: B precursor type acute leukaemia
     Route: 065
  47. IDARUBICIN HYDROCHLORIDE [Suspect]
     Active Substance: IDARUBICIN HYDROCHLORIDE
     Route: 065
  48. IDARUBICIN HYDROCHLORIDE [Suspect]
     Active Substance: IDARUBICIN HYDROCHLORIDE
  49. DAUNORUBICIN [Suspect]
     Active Substance: DAUNORUBICIN
     Indication: Acute lymphocytic leukaemia
  50. DAUNORUBICIN [Suspect]
     Active Substance: DAUNORUBICIN
     Route: 065
  51. DAUNORUBICIN [Suspect]
     Active Substance: DAUNORUBICIN
     Route: 065
  52. DAUNORUBICIN [Suspect]
     Active Substance: DAUNORUBICIN
  53. PREDNISOLONE [Suspect]
     Active Substance: PREDNISOLONE
     Indication: Acute lymphocytic leukaemia
  54. PREDNISOLONE [Suspect]
     Active Substance: PREDNISOLONE
     Route: 065
  55. PREDNISOLONE [Suspect]
     Active Substance: PREDNISOLONE
     Route: 065
  56. PREDNISOLONE [Suspect]
     Active Substance: PREDNISOLONE
  57. ASPARAGINASE [Suspect]
     Active Substance: ASPARAGINASE
     Indication: Acute lymphocytic leukaemia
  58. ASPARAGINASE [Suspect]
     Active Substance: ASPARAGINASE
     Route: 065
  59. ASPARAGINASE [Suspect]
     Active Substance: ASPARAGINASE
     Route: 065
  60. ASPARAGINASE [Suspect]
     Active Substance: ASPARAGINASE
  61. VORICONAZOLE [Concomitant]
     Active Substance: VORICONAZOLE
     Indication: Fusarium infection
  62. VORICONAZOLE [Concomitant]
     Active Substance: VORICONAZOLE
     Route: 065
  63. VORICONAZOLE [Concomitant]
     Active Substance: VORICONAZOLE
     Route: 065
  64. VORICONAZOLE [Concomitant]
     Active Substance: VORICONAZOLE

REACTIONS (12)
  - Febrile neutropenia [Fatal]
  - Systemic mycosis [Fatal]
  - Dyspnoea [Fatal]
  - Rash maculo-papular [Fatal]
  - Oliguria [Fatal]
  - Anxiety [Fatal]
  - Off label use [Fatal]
  - Restlessness [Recovered/Resolved]
  - Neutropenia [Unknown]
  - Pyrexia [Recovered/Resolved]
  - Fusarium infection [Recovered/Resolved]
  - Drug ineffective [Unknown]
